FAERS Safety Report 7044932-7 (Version None)
Quarter: 2010Q4

REPORT INFORMATION
  Report Type: 
  Country: None (occurrence: None)
  Receive Date: 20101014
  Receipt Date: 20101004
  Transmission Date: 20110411
  Serious: Yes (Other)
  Sender: FDA-Public Use
  Company Number: PHHY2010CA63355

PATIENT
  Sex: Male

DRUGS (2)
  1. SANDOSTATIN LAR [Suspect]
     Indication: NEUROENDOCRINE CARCINOMA
     Dosage: 30 MG EVERY 4 WEEKS
     Route: 030
     Dates: start: 20090708, end: 20100901
  2. COUMADIN [Concomitant]
     Dosage: 5 MG, QHS
     Route: 048
     Dates: start: 20100916

REACTIONS (1)
  - THROMBOSIS [None]
